FAERS Safety Report 9375798 (Version 1)
Quarter: 2013Q2

REPORT INFORMATION
  Report Type: Spontaneous
  Country: US (occurrence: US)
  Receive Date: 20130628
  Receipt Date: 20130628
  Transmission Date: 20140414
  Serious: No
  Sender: FDA-Public Use
  Company Number: US-TEVA-415796USA

PATIENT
  Age: 33 Year
  Sex: Male
  Weight: 62.65 kg

DRUGS (4)
  1. PROAIR HFA [Suspect]
     Indication: ASTHMA
     Route: 055
  2. GABAPENTIN [Concomitant]
     Indication: NEUROPATHY PERIPHERAL
  3. LORTAB [Concomitant]
     Indication: PAIN
  4. VALIUM [Concomitant]
     Indication: NEUROPATHY PERIPHERAL

REACTIONS (1)
  - Asthma [Unknown]
